FAERS Safety Report 23520699 (Version 1)
Quarter: 2024Q1

REPORT INFORMATION
  Report Type: Spontaneous
  Country: US (occurrence: US)
  Receive Date: 20240214
  Receipt Date: 20240214
  Transmission Date: 20240410
  Serious: No
  Sender: FDA-Public Use
  Company Number: US-JNJFOC-20240230995

PATIENT
  Age: 6 Year
  Sex: Male

DRUGS (6)
  1. RISPERDAL [Suspect]
     Active Substance: RISPERIDONE
     Indication: Affective disorder
     Dosage: 1MG/1ML 1 MG BID
     Route: 048
     Dates: end: 20111103
  2. RISPERDAL [Suspect]
     Active Substance: RISPERIDONE
     Dosage: 1MG/1ML, 2 MG BID
     Route: 048
     Dates: start: 2011, end: 20110309
  3. RISPERDAL [Suspect]
     Active Substance: RISPERIDONE
     Indication: Affective disorder
     Route: 048
     Dates: start: 20111103
  4. RISPERDAL [Suspect]
     Active Substance: RISPERIDONE
     Dosage: HALF TABLET IN THE AM (QAM) AND 1.5 TABLETS AT BEDTIME (QHS).
     Route: 048
  5. RISPERDAL [Suspect]
     Active Substance: RISPERIDONE
     Indication: Affective disorder
     Route: 048
  6. RISPERDAL [Suspect]
     Active Substance: RISPERIDONE

REACTIONS (3)
  - Tremor [Unknown]
  - Product dose omission issue [Unknown]
  - Off label use [Unknown]

NARRATIVE: CASE EVENT DATE: 20110101
